FAERS Safety Report 26202830 (Version 1)
Quarter: 2025Q4

REPORT INFORMATION
  Report Type: Spontaneous
  Country: US (occurrence: US)
  Receive Date: 20251226
  Receipt Date: 20251226
  Transmission Date: 20260118
  Serious: Yes (Life-Threatening, Hospitalization, Other)
  Sender: BAYER HEALTHCARE LLC
  Company Number: US-MLMSERVICE-20251215-PI748742-00075-1

PATIENT
  Age: 54 Year
  Sex: Male

DRUGS (1)
  1. CALCIUM CARBONATE [Suspect]
     Active Substance: CALCIUM CARBONATE
     Dosage: EXCESSIVE CALCIUM CARBONATE INGESTION IN THE WEEK PRIOR TO ADMISSION
     Route: 048

REACTIONS (6)
  - Milk-alkali syndrome [Recovering/Resolving]
  - Pancreatitis necrotising [Recovering/Resolving]
  - Respiratory disorder [Recovering/Resolving]
  - Haemodynamic instability [Recovering/Resolving]
  - Mental status changes [Recovering/Resolving]
  - Intentional overdose [Recovering/Resolving]
